FAERS Safety Report 5718768-0 (Version None)
Quarter: 2008Q2

REPORT INFORMATION
  Report Type: 
  Country: None (occurrence: None)
  Receive Date: 20080425
  Receipt Date: 20080421
  Transmission Date: 20081010
  Serious: Yes (Death)
  Sender: FDA-Public Use
  Company Number: PHMT2006CA02305

PATIENT
  Age: 36 Year
  Sex: Male

DRUGS (2)
  1. NILOTINIB [Suspect]
     Indication: ACUTE BIPHENOTYPIC LEUKAEMIA
     Dosage: 400 MG, BID
     Route: 048
     Dates: start: 20061114, end: 20070105
  2. MS CONTIN [Concomitant]
     Dosage: 15 MG, BID
     Route: 048

REACTIONS (3)
  - ACUTE LYMPHOCYTIC LEUKAEMIA [None]
  - DRUG INEFFECTIVE [None]
  - MALIGNANT NEOPLASM PROGRESSION [None]
